FAERS Safety Report 8503300-9 (Version None)
Quarter: 2012Q3

REPORT INFORMATION
  Report Type: 
  Country: None (occurrence: None)
  Receive Date: 20120711
  Receipt Date: 20120710
  Transmission Date: 20120928
  Serious: No
  Sender: FDA-Public Use
  Company Number: US-PFIZER INC-2012161409

PATIENT
  Sex: Female

DRUGS (2)
  1. SUTENT [Suspect]
     Indication: RENAL CANCER
     Dosage: 25 MG (FREQUENCY UNKNOWN)
     Dates: start: 20110419
  2. SUTENT [Suspect]
     Indication: MALIGNANT URINARY TRACT NEOPLASM

REACTIONS (2)
  - RENAL CANCER [None]
  - DISEASE PROGRESSION [None]
